FAERS Safety Report 25471553 (Version 6)
Quarter: 2025Q3

REPORT INFORMATION
  Report Type: Spontaneous
  Country: US (occurrence: US)
  Receive Date: 20250624
  Receipt Date: 20250904
  Transmission Date: 20251021
  Serious: No
  Sender: ALEXION PHARMACEUTICALS
  Company Number: US-AstraZeneca-CH-00896039AP

PATIENT
  Sex: Female

DRUGS (1)
  1. AIRSUPRA [Suspect]
     Active Substance: ALBUTEROL SULFATE\BUDESONIDE
     Indication: Product used for unknown indication
     Route: 065

REACTIONS (6)
  - Incorrect dose administered by product [Unknown]
  - Device delivery system issue [Unknown]
  - Product use issue [Unknown]
  - Device use issue [Unknown]
  - Product dispensing issue [Unknown]
  - Product administration error [Unknown]
